FAERS Safety Report 11756403 (Version 1)
Quarter: 2015Q4

REPORT INFORMATION
  Report Type: Spontaneous
  Country: US (occurrence: US)
  Receive Date: 20151119
  Receipt Date: 20151119
  Transmission Date: 20160304
  Serious: No
  Sender: FDA-Public Use
  Company Number: US-ALLERGAN-1506403US

PATIENT
  Sex: Female
  Weight: 61.22 kg

DRUGS (4)
  1. OTC EYE DROP FOR MOISTURIZATION [Concomitant]
     Indication: EYE LUBRICATION THERAPY
  2. SIMVASTATIN. [Concomitant]
     Active Substance: SIMVASTATIN
     Indication: BLOOD CHOLESTEROL INCREASED
     Dosage: UNK
  3. VITAMINS                           /00067501/ [Concomitant]
     Active Substance: VITAMINS
     Indication: SUPPLEMENTATION THERAPY
     Dosage: UNK
  4. COMBIGAN [Suspect]
     Active Substance: BRIMONIDINE TARTRATE\TIMOLOL MALEATE
     Indication: GLAUCOMA
     Dosage: GTT BILATERALLY BID (MORN/EVE)
     Route: 047
     Dates: start: 201502, end: 20150405

REACTIONS (8)
  - Asthenia [Recovered/Resolved]
  - Fatigue [Recovered/Resolved]
  - Eye swelling [Not Recovered/Not Resolved]
  - Dry throat [Recovered/Resolved]
  - Mood swings [Recovered/Resolved]
  - Ocular hyperaemia [Not Recovered/Not Resolved]
  - Eye pruritus [Not Recovered/Not Resolved]
  - Eye irritation [Not Recovered/Not Resolved]
